FAERS Safety Report 13655502 (Version 1)
Quarter: 2017Q2

REPORT INFORMATION
  Report Type: Spontaneous
  Country: US (occurrence: US)
  Receive Date: 20170614
  Receipt Date: 20170614
  Transmission Date: 20170830
  Serious: No
  Sender: FDA-Public Use
  Company Number: None

PATIENT
  Age: 59 Year
  Sex: Female
  Weight: 67.6 kg

DRUGS (1)
  1. PACLITAXEL 300MG/50ML [Suspect]
     Active Substance: PACLITAXEL
     Indication: PROSTATE CANCER
     Dosage: 150MG Q7D IV
     Route: 042
     Dates: start: 20170505

REACTIONS (5)
  - Flushing [None]
  - Dizziness [None]
  - Hypertension [None]
  - Oxygen saturation decreased [None]
  - Cough [None]

NARRATIVE: CASE EVENT DATE: 20170525
